FAERS Safety Report 17111298 (Version 3)
Quarter: 2020Q4

REPORT INFORMATION
  Report Type: Report from Study
  Country: DE (occurrence: DE)
  Receive Date: 20191204
  Receipt Date: 20201204
  Transmission Date: 20210113
  Serious: Yes (Death, Hospitalization)
  Sender: FDA-Public Use
  Company Number: DE-ROCHE-2425380

PATIENT
  Sex: Male
  Weight: 63 kg

DRUGS (25)
  1. PREDNISOLONE. [Suspect]
     Active Substance: PREDNISOLONE
     Indication: POST TRANSPLANT LYMPHOPROLIFERATIVE DISORDER
     Dosage: CYCLE 1
     Route: 048
     Dates: start: 20190705
  2. MINOCYCLINE [Concomitant]
     Active Substance: MINOCYCLINE HYDROCHLORIDE
  3. CYCLOPHOSPHAMIDE. [Suspect]
     Active Substance: CYCLOPHOSPHAMIDE
     Indication: POST TRANSPLANT LYMPHOPROLIFERATIVE DISORDER
     Dosage: CYCLE 1?RITUXIMAB ADMINISTERED SUBCUTANEOUSLY AT A FIXED DOSE OF 1400 MG COMBINED WITH CHOP CHEMOTHE
     Route: 042
     Dates: start: 20190705
  4. VINCRISTINE [Suspect]
     Active Substance: VINCRISTINE
     Dosage: CYCLE  4
     Route: 042
     Dates: start: 20190913
  5. MYCOPHENOLATE MOFETIL. [Concomitant]
     Active Substance: MYCOPHENOLATE MOFETIL
     Route: 065
  6. RITUXIMAB. [Suspect]
     Active Substance: RITUXIMAB
     Indication: POST TRANSPLANT LYMPHOPROLIFERATIVE DISORDER
     Dosage: RITUXIMAB ON DAYS 1, 8, 15 AND 22. RITUXIMAB WILL BE ADMINISTERED AS A SINGLE THERAPEUTIC AGENT AT A
     Route: 042
     Dates: start: 20190425
  7. CYCLOPHOSPHAMIDE. [Suspect]
     Active Substance: CYCLOPHOSPHAMIDE
     Dosage: CYCLE 2
     Route: 042
     Dates: start: 20190802
  8. RITUXIMAB. [Suspect]
     Active Substance: RITUXIMAB
     Indication: POST TRANSPLANT LYMPHOPROLIFERATIVE DISORDER
     Dosage: SUBSEQUENTLY, HE RECEIVED RITUXIMAB SC ON 10/MAY/2020, 16/MAY/2019, 05/JUL/2019, 02/AUG/2019, 23/AUG
     Route: 058
     Dates: start: 20190502
  9. CYCLOPHOSPHAMIDE. [Suspect]
     Active Substance: CYCLOPHOSPHAMIDE
     Dosage: CYCLE 4
     Route: 042
     Dates: start: 20190913
  10. VINCRISTINE [Suspect]
     Active Substance: VINCRISTINE
     Indication: POST TRANSPLANT LYMPHOPROLIFERATIVE DISORDER
     Dosage: CYCLE 1
     Route: 042
     Dates: start: 20190705
  11. TACROLIMUS. [Concomitant]
     Active Substance: TACROLIMUS
     Dosage: 4-6 MG
  12. POSACONAZOLE [Concomitant]
     Active Substance: POSACONAZOLE
  13. EVEROLIMUS. [Concomitant]
     Active Substance: EVEROLIMUS
     Dosage: 4-6 MG
  14. CYCLOPHOSPHAMIDE. [Suspect]
     Active Substance: CYCLOPHOSPHAMIDE
     Dosage: CYCLE 3
     Route: 042
     Dates: start: 20190823
  15. DOXORUBICIN [Suspect]
     Active Substance: DOXORUBICIN
     Indication: POST TRANSPLANT LYMPHOPROLIFERATIVE DISORDER
     Route: 042
     Dates: start: 20190705
  16. PREDNISOLONE. [Suspect]
     Active Substance: PREDNISOLONE
     Dosage: CYCLE 2
     Route: 048
     Dates: start: 20190802
  17. PREDNISOLONE. [Suspect]
     Active Substance: PREDNISOLONE
     Dosage: CYCLE 3
     Route: 048
     Dates: start: 20190823
  18. DOXORUBICIN [Suspect]
     Active Substance: DOXORUBICIN
     Route: 042
     Dates: start: 20190802
  19. DOXORUBICIN [Suspect]
     Active Substance: DOXORUBICIN
     Route: 042
     Dates: start: 20190823
  20. DOXORUBICIN [Suspect]
     Active Substance: DOXORUBICIN
     Route: 042
     Dates: start: 20190913
  21. COTRIMAZOL [Concomitant]
     Active Substance: SULFAMETHOXAZOLE\TRIMETHOPRIM
  22. PANTROZOLE [Concomitant]
  23. PREDNISOLONE. [Suspect]
     Active Substance: PREDNISOLONE
     Dosage: CYCLE 4
     Route: 048
     Dates: start: 20190913
  24. VINCRISTINE [Suspect]
     Active Substance: VINCRISTINE
     Dosage: CYCLE  2
     Route: 042
     Dates: start: 20190802
  25. VINCRISTINE [Suspect]
     Active Substance: VINCRISTINE
     Dosage: CYCLE 3
     Route: 042
     Dates: start: 20200823

REACTIONS (2)
  - Pneumonia [Recovered/Resolved]
  - Lung infiltration [Fatal]

NARRATIVE: CASE EVENT DATE: 20190921
